FAERS Safety Report 20281933 (Version 1)
Quarter: 2022Q1

REPORT INFORMATION
  Report Type: Spontaneous
  Country: US (occurrence: US)
  Receive Date: 20220103
  Receipt Date: 20220103
  Transmission Date: 20220423
  Serious: No
  Sender: FDA-Public Use
  Company Number: US-ORGANON-O2112USA002681

PATIENT
  Age: 22 Year
  Sex: Female
  Weight: 71.202 kg

DRUGS (1)
  1. NEXPLANON [Suspect]
     Active Substance: ETONOGESTREL
     Indication: Contraception
     Dosage: (1 IMPLANT) EVERY 3 YEARS
     Route: 059
     Dates: start: 20181203

REACTIONS (2)
  - Incorrect product administration duration [Unknown]
  - Menstruation delayed [Not Recovered/Not Resolved]

NARRATIVE: CASE EVENT DATE: 20211201
